FAERS Safety Report 15899461 (Version 2)
Quarter: 2019Q1

REPORT INFORMATION
  Report Type: Spontaneous
  Country: US (occurrence: US)
  Receive Date: 20190201
  Receipt Date: 20190212
  Transmission Date: 20190417
  Serious: Yes (Other)
  Sender: FDA-Public Use
  Company Number: US-ASTRAZENECA-2018SF65635

PATIENT

DRUGS (19)
  1. CARVEDILOL. [Concomitant]
     Active Substance: CARVEDILOL
  2. NOVOLOG [Concomitant]
     Active Substance: INSULIN ASPART
  3. NEXIUM [Suspect]
     Active Substance: ESOMEPRAZOLE MAGNESIUM
     Route: 048
     Dates: start: 2007, end: 2018
  4. LASIX [Concomitant]
     Active Substance: FUROSEMIDE
  5. GABAPENTIN. [Concomitant]
     Active Substance: GABAPENTIN
  6. BROMFENAC [Concomitant]
     Active Substance: BROMFENAC SODIUM
  7. CARVEDILOL. [Concomitant]
     Active Substance: CARVEDILOL
  8. PENTOXIFYLLINE. [Concomitant]
     Active Substance: PENTOXIFYLLINE
  9. TIZANIDINE. [Concomitant]
     Active Substance: TIZANIDINE
  10. TRAMADOL. [Concomitant]
     Active Substance: TRAMADOL
  11. HYDROCODONE-ACETAMINOPHEN [Concomitant]
     Active Substance: ACETAMINOPHEN\HYDROCODONE
  12. LISINOPRIL. [Concomitant]
     Active Substance: LISINOPRIL
  13. AMLODIPINE [Concomitant]
     Active Substance: AMLODIPINE BESYLATE
  14. FUROSEMIDE. [Concomitant]
     Active Substance: FUROSEMIDE
  15. ONGLYZA [Concomitant]
     Active Substance: SAXAGLIPTIN HYDROCHLORIDE
  16. TIZANIDINE. [Concomitant]
     Active Substance: TIZANIDINE
  17. FLUTICASONE. [Concomitant]
     Active Substance: FLUTICASONE
  18. PROAIR HFA [Concomitant]
     Active Substance: ALBUTEROL SULFATE
  19. CRESTOR [Concomitant]
     Active Substance: ROSUVASTATIN CALCIUM

REACTIONS (3)
  - Renal failure [Unknown]
  - Chronic kidney disease [Unknown]
  - Rebound acid hypersecretion [Unknown]
